FAERS Safety Report 13249022 (Version 1)
Quarter: 2017Q1

REPORT INFORMATION
  Report Type: Spontaneous
  Country: US (occurrence: US)
  Receive Date: 20170218
  Receipt Date: 20170218
  Transmission Date: 20170428
  Serious: No
  Sender: FDA-Public Use
  Company Number: US-ALLERGAN-1652115US

PATIENT
  Age: 83 Year
  Sex: Female

DRUGS (5)
  1. RESTASIS [Suspect]
     Active Substance: CYCLOSPORINE
     Indication: NEUROTROPHIC KERATOPATHY
     Dosage: 2 GTT, BID
     Route: 047
     Dates: start: 201509
  2. REFRESH TEARS [Concomitant]
     Active Substance: CARBOXYMETHYLCELLULOSE SODIUM
     Indication: EYE IRRITATION
     Dosage: UNK
     Route: 047
     Dates: start: 20160321
  3. RESTASIS [Suspect]
     Active Substance: CYCLOSPORINE
     Dosage: 2 GTT, BID
     Route: 047
     Dates: start: 20160325
  4. SYSTANE (HYPROMELLOSE 2910 (4000 MPA.S)) [Concomitant]
     Active Substance: HYPROMELLOSE 2910 (4000 MPA.S)
     Indication: EYE IRRITATION
     Dosage: UNK
     Route: 047
     Dates: start: 20160321
  5. OASIS TEARS [Concomitant]
     Active Substance: GLYCERIN
     Indication: EYE IRRITATION
     Dosage: UNK
     Route: 047
     Dates: start: 20160321, end: 20160325

REACTIONS (9)
  - Madarosis [Not Recovered/Not Resolved]
  - Off label use [Unknown]
  - Visual acuity reduced [Recovering/Resolving]
  - Eye pruritus [Not Recovered/Not Resolved]
  - Vision blurred [Recovering/Resolving]
  - Foreign body sensation in eyes [Not Recovered/Not Resolved]
  - Eye irritation [Unknown]
  - Eye pain [Recovering/Resolving]
  - Eye discharge [Not Recovered/Not Resolved]

NARRATIVE: CASE EVENT DATE: 20160325
